FAERS Safety Report 5482224-8 (Version None)
Quarter: 2007Q4

REPORT INFORMATION
  Report Type: 
  Country: None (occurrence: None)
  Receive Date: 20071011
  Receipt Date: 20071004
  Transmission Date: 20080405
  Serious: Yes (Hospitalization)
  Sender: FDA-Public Use
  Company Number: US-BRISTOL-MYERS SQUIBB COMPANY-13930144

PATIENT
  Age: 63 Year
  Sex: Female

DRUGS (1)
  1. TEQUIN [Suspect]
     Route: 042

REACTIONS (5)
  - ATRIAL FIBRILLATION [None]
  - DEHYDRATION [None]
  - DEPRESSION [None]
  - RENAL FAILURE ACUTE [None]
  - SEPSIS [None]
